FAERS Safety Report 7932361-0 (Version None)
Quarter: 2011Q4

REPORT INFORMATION
  Report Type: 
  Country: None (occurrence: None)
  Receive Date: 20111121
  Receipt Date: 20111114
  Transmission Date: 20120403
  Serious: Yes (Hospitalization)
  Sender: FDA-Public Use
  Company Number: JP-BRISTOL-MYERS SQUIBB COMPANY-15784978

PATIENT
  Age: 77 Year
  Sex: Female

DRUGS (2)
  1. ORENCIA [Suspect]
     Indication: RHEUMATOID ARTHRITIS
     Dosage: INTE 21FEB11 AND RESTAT ON 16MAY11, LASTDATE:13JUN11.11NOV10,25NOV10,27DEC10,24JAN11.
     Route: 041
     Dates: start: 20101028
  2. PEON [Concomitant]
     Indication: RHEUMATOID ARTHRITIS

REACTIONS (1)
  - COLITIS ULCERATIVE [None]
